FAERS Safety Report 4284530-1 (Version None)
Quarter: 2004Q1

REPORT INFORMATION
  Report Type: 
  Country: None (occurrence: None)
  Receive Date: 20040130
  Receipt Date: 20040120
  Transmission Date: 20041129
  Serious: Yes (Death, Hospitalization)
  Sender: FDA-Public Use
  Company Number: B01200301756

PATIENT
  Age: 68 Year
  Sex: Male

DRUGS (5)
  1. CLOPIDOGREL BISULFATE [Suspect]
     Indication: ISCHAEMIC STROKE
     Dosage: 75 MG DAILY
     Route: 048
     Dates: start: 20020118, end: 20030324
  2. ASPIRIN [Suspect]
     Indication: ISCHAEMIC STROKE
     Dosage: 75 MG ASPIRIN DAILY
     Route: 048
     Dates: start: 20020118, end: 20030324
  3. ASPIRIN [Suspect]
     Indication: TRANSIENT ISCHAEMIC ATTACK
     Dosage: 75 MG ASPIRIN DAILY
     Route: 048
     Dates: start: 20020118, end: 20030324
  4. VASOTEC [Concomitant]
  5. LABETALOL HCL [Concomitant]

REACTIONS (8)
  - HAEMOGLOBIN DECREASED [None]
  - HAEMORRHOIDS [None]
  - HYPOTENSION [None]
  - LOWER GASTROINTESTINAL HAEMORRHAGE [None]
  - MYOCARDIAL INFARCTION [None]
  - RECTAL ULCER [None]
  - SEPSIS [None]
  - SUDDEN DEATH [None]
